FAERS Safety Report 8583217-4 (Version None)
Quarter: 2012Q3

REPORT INFORMATION
  Report Type: 
  Country: None (occurrence: None)
  Receive Date: 20120809
  Receipt Date: 20120802
  Transmission Date: 20120928
  Serious: Yes (Hospitalization)
  Sender: FDA-Public Use
  Company Number: US-ACTELION-A-US2011-45071

PATIENT
  Age: 53 Year
  Sex: Female

DRUGS (8)
  1. TRACLEER [Suspect]
     Indication: PULMONARY ARTERIAL HYPERTENSION
     Dosage: UNK
     Route: 048
     Dates: start: 20050712
  2. COUMADIN [Concomitant]
  3. ASPIRIN [Concomitant]
  4. EPOPROSTENOL SODIUM [Suspect]
     Dosage: 59 NG/KG, PER MIN
     Route: 042
  5. EPOPROSTENOL SODIUM [Suspect]
     Indication: PULMONARY ARTERIAL HYPERTENSION
     Dosage: 57 NG/KG, PER MIN
     Route: 042
     Dates: start: 20110914
  6. REVATIO [Concomitant]
  7. FUROSEMIDE [Concomitant]
  8. TRACLEER [Suspect]
     Route: 048

REACTIONS (17)
  - PLASMAPHERESIS [None]
  - HEADACHE [None]
  - BLOOD GLUCOSE INCREASED [None]
  - ASTHENIA [None]
  - PAIN [None]
  - WALKING DISTANCE TEST ABNORMAL [None]
  - BLOOD IRON DECREASED [None]
  - DYSPNOEA [None]
  - HEARING IMPAIRED [None]
  - BLOOD PRODUCT TRANSFUSION [None]
  - SENSATION OF HEAVINESS [None]
  - CHEST PAIN [None]
  - FOOD POISONING [None]
  - FLUSHING [None]
  - PANEL-REACTIVE ANTIBODY INCREASED [None]
  - HYPOAESTHESIA [None]
  - PELVIC PAIN [None]
